FAERS Safety Report 13142776 (Version 1)
Quarter: 2017Q1

REPORT INFORMATION
  Report Type: Spontaneous
  Country: US (occurrence: US)
  Receive Date: 20170123
  Receipt Date: 20170123
  Transmission Date: 20170428
  Serious: No
  Sender: FDA-Public Use
  Company Number: US-ALLERGAN-1653815US

PATIENT
  Sex: Female

DRUGS (2)
  1. GELNIQUE [Suspect]
     Active Substance: OXYBUTYNIN
     Indication: URINARY INCONTINENCE
     Dosage: UNK
     Route: 061
     Dates: start: 2014
  2. FLUTICASONE. [Concomitant]
     Active Substance: FLUTICASONE
     Route: 045

REACTIONS (1)
  - Myalgia [Not Recovered/Not Resolved]
